FAERS Safety Report 10611297 (Version 1)
Quarter: 2014Q4

REPORT INFORMATION
  Report Type: Spontaneous
  Country: FR (occurrence: None)
  Receive Date: 20141124
  Receipt Date: 20141124
  Transmission Date: 20150529
  Serious: Yes (Hospitalization, Other)
  Sender: FDA-Public Use
  Company Number: FR-ZYDUS-005586

PATIENT
  Age: 54 Year
  Sex: Female

DRUGS (1)
  1. IRBESARTAN. [Suspect]
     Active Substance: IRBESARTAN
     Indication: HYPERTENSION
     Dates: start: 201108, end: 201307

REACTIONS (4)
  - Acute kidney injury [None]
  - Abdominal pain [None]
  - Weight decreased [None]
  - Gastrointestinal disorder [None]

NARRATIVE: CASE EVENT DATE: 201205
